FAERS Safety Report 9801400 (Version 2)
Quarter: 2014Q1

REPORT INFORMATION
  Report Type: Spontaneous
  Country: IT (occurrence: IT)
  Receive Date: 20140107
  Receipt Date: 20140127
  Transmission Date: 20141002
  Serious: No
  Sender: FDA-Public Use
  Company Number: IT-ACTAVIS-2013-24237

PATIENT
  Age: 39 Year
  Sex: Male

DRUGS (2)
  1. PARACETAMOL (UNKNOWN) [Suspect]
     Indication: PYREXIA
     Dosage: 1000 MG, DAILY
     Route: 048
     Dates: start: 20130528, end: 20130601
  2. VELAMOX /00249601/ [Suspect]
     Indication: PYREXIA
     Dosage: 2 DF, DAILY
     Route: 048
     Dates: start: 20130530, end: 20130601

REACTIONS (1)
  - Erythema [Unknown]
